FAERS Safety Report 10592342 (Version 3)
Quarter: 2015Q1

REPORT INFORMATION
  Report Type: Spontaneous
  Country: KR (occurrence: None)
  Receive Date: 20141117
  Receipt Date: 20150202
  Transmission Date: 20150720
  Serious: Yes (Other)
  Sender: FDA-Public Use
  Company Number: KR2014GSK015349

PATIENT
  Sex: Male

DRUGS (2)
  1. LAMIVUDINE (LAMIVUDINE) UNKNOWN [Suspect]
     Active Substance: LAMIVUDINE
     Indication: CHRONIC HEPATITIS B
  2. ENTECAVIR (ENTECAVIR) UNKNOWN [Suspect]
     Active Substance: ENTECAVIR

REACTIONS (3)
  - Drug resistance [None]
  - Genotype drug resistance test [None]
  - Viral infection [None]
